FAERS Safety Report 4794284-8 (Version None)
Quarter: 2005Q4

REPORT INFORMATION
  Report Type: 
  Country: None (occurrence: None)
  Receive Date: 20051011
  Receipt Date: 20050923
  Transmission Date: 20060501
  Serious: Yes (Other)
  Sender: FDA-Public Use
  Company Number: FR-GLAXOSMITHKLINE-B0396572A

PATIENT
  Age: 42 Year
  Sex: Female

DRUGS (3)
  1. NARAMIG [Suspect]
     Indication: MIGRAINE
     Route: 048
  2. IMIGRANE [Suspect]
     Indication: MIGRAINE
     Route: 045
  3. LAROXYL [Concomitant]
     Indication: TENSION HEADACHE
     Route: 048

REACTIONS (3)
  - DEAFNESS [None]
  - EAR DISORDER [None]
  - EAR INFECTION [None]
